FAERS Safety Report 9728377 (Version 3)
Quarter: 2014Q1

REPORT INFORMATION
  Report Type: Spontaneous
  Country: JP (occurrence: JP)
  Receive Date: 20131204
  Receipt Date: 20140318
  Transmission Date: 20141002
  Serious: Yes (Other)
  Sender: FDA-Public Use
  Company Number: JP-JNJFOC-20131118191

PATIENT
  Age: 56 Year
  Sex: Male
  Weight: 54 kg

DRUGS (8)
  1. REMICADE [Suspect]
     Indication: PSORIASIS
     Route: 042
     Dates: start: 20130511
  2. REMICADE [Suspect]
     Indication: PSORIASIS
     Route: 042
     Dates: start: 20130309
  3. REMICADE [Suspect]
     Indication: PSORIASIS
     Route: 042
     Dates: start: 20100717
  4. REMICADE [Suspect]
     Indication: PSORIASIS
     Route: 042
     Dates: start: 20100703
  5. CORTICOSTEROIDS [Concomitant]
     Route: 065
  6. NORVASC [Concomitant]
     Indication: HYPERTENSION
     Route: 048
  7. OLMETEC [Concomitant]
     Indication: HYPERTENSION
     Route: 048
  8. ALOSITOL [Concomitant]
     Indication: HYPERURICAEMIA
     Route: 048

REACTIONS (1)
  - Rheumatoid arthritis [Recovering/Resolving]
